FAERS Safety Report 17119606 (Version 3)
Quarter: 2020Q1

REPORT INFORMATION
  Report Type: Report from Study
  Country: US (occurrence: US)
  Receive Date: 20191206
  Receipt Date: 20200228
  Transmission Date: 20200409
  Serious: Yes (Hospitalization)
  Sender: FDA-Public Use
  Company Number: US-ROCHE-2484242

PATIENT
  Age: 63 Year
  Sex: Female
  Weight: 51.43 kg

DRUGS (15)
  1. LOSARTAN. [Concomitant]
     Active Substance: LOSARTAN
  2. DILTIAZEM. [Concomitant]
     Active Substance: DILTIAZEM
  3. OMEPRAZOLE. [Concomitant]
     Active Substance: OMEPRAZOLE
  4. ATEZOLIZUMAB. [Suspect]
     Active Substance: ATEZOLIZUMAB
     Indication: METASTATIC NEOPLASM
     Route: 042
     Dates: start: 20191022
  5. LEVOTHYROXINE. [Concomitant]
     Active Substance: LEVOTHYROXINE
  6. ALENDRONATE SODIUM. [Concomitant]
     Active Substance: ALENDRONATE SODIUM
  7. DULCOLAX (BISACODYL) [Concomitant]
     Active Substance: BISACODYL
  8. HYDRALAZINE [Concomitant]
     Active Substance: HYDRALAZINE HYDROCHLORIDE
  9. LIOTHYRONINE [Concomitant]
     Active Substance: LIOTHYRONINE
  10. TRAMADOL. [Concomitant]
     Active Substance: TRAMADOL
  11. SODIUM CHLORIDE. [Concomitant]
     Active Substance: SODIUM CHLORIDE
  12. ONDANSETRON [Concomitant]
     Active Substance: ONDANSETRON
  13. LOSARTAN. [Concomitant]
     Active Substance: LOSARTAN
  14. FUROSEMIDE. [Concomitant]
     Active Substance: FUROSEMIDE
  15. CABOZANTINIB [Suspect]
     Active Substance: CABOZANTINIB
     Indication: METASTATIC NEOPLASM
     Route: 048
     Dates: start: 20191022

REACTIONS (2)
  - Skin ulcer [Not Recovered/Not Resolved]
  - Palmar-plantar erythrodysaesthesia syndrome [Not Recovered/Not Resolved]

NARRATIVE: CASE EVENT DATE: 20191113
